FAERS Safety Report 16651423 (Version 1)
Quarter: 2019Q3

REPORT INFORMATION
  Report Type: Spontaneous
  Country: US (occurrence: US)
  Receive Date: 20190730
  Receipt Date: 20190730
  Transmission Date: 20191004
  Serious: Yes (Other)
  Sender: FDA-Public Use
  Company Number: None

PATIENT
  Age: 25 Year
  Sex: Female
  Weight: 61.65 kg

DRUGS (2)
  1. METRONIDAZOLE 500 MG TABLET [Suspect]
     Active Substance: METRONIDAZOLE
     Indication: TRICHOMONIASIS
     Route: 048
  2. ZYRTEC [Concomitant]
     Active Substance: CETIRIZINE HYDROCHLORIDE

REACTIONS (13)
  - Nausea [None]
  - Photosensitivity reaction [None]
  - Hypoaesthesia [None]
  - Heart rate increased [None]
  - Headache [None]
  - Anxiety [None]
  - Panic attack [None]
  - Dizziness [None]
  - Irritability [None]
  - Feeling abnormal [None]
  - Therapy change [None]
  - Dyspnoea [None]
  - Insomnia [None]

NARRATIVE: CASE EVENT DATE: 20190729
